FAERS Safety Report 20410099 (Version 3)
Quarter: 2022Q1

REPORT INFORMATION
  Report Type: Spontaneous
  Country: US (occurrence: US)
  Receive Date: 20220201
  Receipt Date: 20220331
  Transmission Date: 20220423
  Serious: Yes (Other)
  Sender: FDA-Public Use
  Company Number: US-SA-SAC20220131001107

PATIENT
  Age: 67 Year
  Sex: Female

DRUGS (6)
  1. DUPIXENT [Suspect]
     Active Substance: DUPILUMAB
     Indication: Asthma
     Dosage: 300 MG, QOW
     Route: 058
     Dates: start: 202005
  2. DORZOLAMIDE HYDROCHLORIDE\TIMOLOL MALEATE [Concomitant]
     Active Substance: DORZOLAMIDE HYDROCHLORIDE\TIMOLOL MALEATE
  3. PREDNISOLONE ACETATE [Concomitant]
     Active Substance: PREDNISOLONE ACETATE
  4. KETOROLAC TROMETHAMINE [Concomitant]
     Active Substance: KETOROLAC TROMETHAMINE
  5. LATANOPROST [Concomitant]
     Active Substance: LATANOPROST
  6. KETAMINE [Concomitant]
     Active Substance: KETAMINE

REACTIONS (8)
  - Retinal tear [Unknown]
  - Macular hole [Unknown]
  - Eye disorder [Unknown]
  - Metamorphopsia [Unknown]
  - Anxiety [Unknown]
  - Nausea [Unknown]
  - Visual impairment [Unknown]
  - Ophthalmic fluid-air exchange procedure [Unknown]
